FAERS Safety Report 6583099-6 (Version None)
Quarter: 2010Q1

REPORT INFORMATION
  Report Type: 
  Country: None (occurrence: None)
  Receive Date: 20100216
  Receipt Date: 20100208
  Transmission Date: 20100710
  Serious: Yes (Other)
  Sender: FDA-Public Use
  Company Number: US-MERCK-0712USA08353

PATIENT
  Age: 48 Year
  Sex: Female

DRUGS (4)
  1. FOSAMAX [Suspect]
     Indication: OSTEOPOROSIS
     Route: 048
     Dates: start: 20070101, end: 20080301
  2. FOSAMAX [Suspect]
     Route: 048
     Dates: start: 20010320, end: 20020301
  3. LIPITOR [Concomitant]
     Indication: BLOOD CHOLESTEROL INCREASED
     Route: 065
     Dates: start: 20000101, end: 20070101
  4. ZYRTEC [Concomitant]
     Route: 065
     Dates: start: 20000101, end: 20070101

REACTIONS (10)
  - ANXIETY [None]
  - ASTHENIA [None]
  - DEAFNESS UNILATERAL [None]
  - DEPRESSION [None]
  - HEADACHE [None]
  - OSTEOARTHRITIS [None]
  - OSTEONECROSIS [None]
  - SINUS CONGESTION [None]
  - SOMNOLENCE [None]
  - URTICARIA [None]
